FAERS Safety Report 6378116-2 (Version None)
Quarter: 2009Q3

REPORT INFORMATION
  Report Type: 
  Country: None (occurrence: None)
  Receive Date: 20090925
  Receipt Date: 20090923
  Transmission Date: 20100115
  Serious: Yes (Hospitalization)
  Sender: FDA-Public Use
  Company Number: FR-MERCK-0909FRA00067

PATIENT
  Age: 86 Year
  Sex: Female

DRUGS (6)
  1. PRIMAXIN [Suspect]
     Indication: PYREXIA
     Route: 041
     Dates: start: 20090715, end: 20090721
  2. CEFTRIAXONE SODIUM [Suspect]
     Indication: PYREXIA
     Route: 042
     Dates: start: 20090710, end: 20090715
  3. AMIKACIN SULFATE [Suspect]
     Indication: PYREXIA
     Route: 042
     Dates: start: 20090711, end: 20090713
  4. SPIRONOLACTONE [Concomitant]
     Indication: OEDEMA PERIPHERAL
     Route: 065
  5. DOXYCYCLINE CALCIUM [Concomitant]
     Indication: BRUCELLOSIS
     Route: 065
  6. CETIRIZINE HYDROCHLORIDE [Concomitant]
     Route: 065

REACTIONS (3)
  - BLISTER [None]
  - DERMATITIS BULLOUS [None]
  - PRURITUS [None]
